FAERS Safety Report 10524740 (Version 5)
Quarter: 2021Q2

REPORT INFORMATION
  Report Type: Spontaneous
  Country: GB (occurrence: GB)
  Receive Date: 20141017
  Receipt Date: 20210606
  Transmission Date: 20210716
  Serious: Yes (Hospitalization, Other)
  Sender: FDA-Public Use
  Company Number: GB-TEVA-513825ISR

PATIENT
  Age: 65 Year
  Sex: Male
  Weight: 94 kg

DRUGS (11)
  1. DEXAMETHASONE. [Suspect]
     Active Substance: DEXAMETHASONE
     Indication: GASTRIC CANCER
     Dosage: 12 MILLIGRAM DAILY; DATE OF LAST DOSE: 09/MAR/2012
     Route: 048
     Dates: start: 20120124, end: 20120309
  2. APREPITANT. [Suspect]
     Active Substance: APREPITANT
     Indication: GASTRIC CANCER
     Dosage: 125 MILLIGRAM DAILY; DATE OF LAST DOSE: 06/MAR/2012
     Route: 048
     Dates: start: 20120124, end: 20210306
  3. ONDANSETRON [Suspect]
     Active Substance: ONDANSETRON
     Indication: GASTRIC CANCER
     Dosage: 16 MILLIGRAM DAILY; DATE OF LAST DOSE: 09/MAR/2012
     Route: 048
     Dates: start: 20120124, end: 20120309
  4. CISPLATIN. [Suspect]
     Active Substance: CISPLATIN
     Indication: GASTRIC CANCER
     Dosage: DATE OF MOST RECENT ADMINISTRATION: 06/MAR/2012, 113 MG
     Route: 042
     Dates: start: 20120124
  5. EPIRUBICIN HYDROCHLORIDE. [Suspect]
     Active Substance: EPIRUBICIN HYDROCHLORIDE
     Indication: GASTRIC CANCER
     Dosage: DATE OF MOST RECENT ADMINISTRATION: 06/MAR/2012, 95 MG
     Route: 042
     Dates: start: 20120124, end: 20120306
  6. AVASTIN [Suspect]
     Active Substance: BEVACIZUMAB
     Indication: GASTRIC CANCER
     Dosage: DATE OF MOST RECENT ADMINISTRATION: 06/MAR/2012, 743 MG
     Route: 042
     Dates: start: 20120124, end: 20120306
  7. SIMVASTATIN. [Concomitant]
     Active Substance: SIMVASTATIN
     Indication: PRODUCT USED FOR UNKNOWN INDICATION
     Route: 048
     Dates: start: 200503
  8. FUROSEMIDE. [Suspect]
     Active Substance: FUROSEMIDE
     Indication: GASTRIC CANCER
     Dosage: 40 MILLIGRAM DAILY; DATE OF LAST DOSE: 06/MAR/2012
     Route: 048
     Dates: start: 20120124, end: 20120306
  9. LISINOPRIL. [Concomitant]
     Active Substance: LISINOPRIL
     Indication: PRODUCT USED FOR UNKNOWN INDICATION
     Route: 065
     Dates: start: 200705
  10. EPIRUBICIN HYDROCHLORIDE. [Suspect]
     Active Substance: EPIRUBICIN HYDROCHLORIDE
     Dosage: 95 MG
     Route: 042
     Dates: start: 20120124, end: 20120306
  11. XELODA [Suspect]
     Active Substance: CAPECITABINE
     Indication: GASTRIC CANCER
     Dosage: DATE OF MOST RECENT ADMINISTRATION: 27/MAR/2012
     Route: 048
     Dates: start: 20120124, end: 20120327

REACTIONS (4)
  - Febrile neutropenia [Recovered/Resolved]
  - Vomiting [Recovered/Resolved]
  - Abdominal sepsis [Recovered/Resolved]
  - Diarrhoea [Recovered/Resolved]

NARRATIVE: CASE EVENT DATE: 20120313
